FAERS Safety Report 4926372-7 (Version None)
Quarter: 2006Q1

REPORT INFORMATION
  Report Type: 
  Country: None (occurrence: None)
  Receive Date: 20060228
  Receipt Date: 20051107
  Transmission Date: 20060701
  Serious: No
  Sender: FDA-Public Use
  Company Number: US-GLAXOSMITHKLINE-A0581261A

PATIENT
  Age: 13 Year
  Sex: Male

DRUGS (4)
  1. LAMICTAL [Suspect]
     Indication: BIPOLAR DISORDER
     Dosage: 175MG PER DAY
     Route: 048
  2. CONCERTA [Concomitant]
  3. RISPERDAL [Concomitant]
  4. KLONOPIN [Concomitant]

REACTIONS (3)
  - LOCAL SWELLING [None]
  - PRURITUS [None]
  - RASH [None]
